FAERS Safety Report 14611562 (Version 1)
Quarter: 2018Q1

REPORT INFORMATION
  Report Type: Report from Study
  Country: GB (occurrence: GB)
  Receive Date: 20180308
  Receipt Date: 20180308
  Transmission Date: 20180509
  Serious: Yes (Hospitalization)
  Sender: FDA-Public Use
  Company Number: GB-ROCHE-1518153

PATIENT
  Age: 75 Year
  Sex: Female

DRUGS (3)
  1. SALAZOPYRINE [Concomitant]
     Active Substance: SULFASALAZINE
  2. METHOTREXATE. [Concomitant]
     Active Substance: METHOTREXATE
  3. RITUXIMAB. [Suspect]
     Active Substance: RITUXIMAB
     Indication: RHEUMATOID ARTHRITIS
     Route: 042
     Dates: start: 20110711

REACTIONS (3)
  - Respiratory failure [Unknown]
  - Chronic obstructive pulmonary disease [Unknown]
  - Infective exacerbation of chronic obstructive airways disease [Unknown]

NARRATIVE: CASE EVENT DATE: 20170415
